FAERS Safety Report 25635137 (Version 1)
Quarter: 2025Q3

REPORT INFORMATION
  Report Type: Spontaneous
  Country: US (occurrence: US)
  Receive Date: 20250802
  Receipt Date: 20250802
  Transmission Date: 20251020
  Serious: No
  Sender: SANOFI AVENTIS
  Company Number: US-SA-2025SA224256

PATIENT
  Age: 64 Year
  Sex: Female
  Weight: 64.55 kg

DRUGS (3)
  1. DUPIXENT [Suspect]
     Active Substance: DUPILUMAB
     Indication: Dermatitis atopic
     Route: 058
  2. DUPIXENT [Suspect]
     Active Substance: DUPILUMAB
     Dosage: 300 MG, QOW
     Route: 058
  3. PROLIA [Concomitant]
     Active Substance: DENOSUMAB

REACTIONS (2)
  - Herpes zoster [Unknown]
  - Injection site pain [Unknown]

NARRATIVE: CASE EVENT DATE: 20250701
